FAERS Safety Report 9925546 (Version 1)
Quarter: 2014Q1

REPORT INFORMATION
  Report Type: Spontaneous
  Country: US (occurrence: None)
  Receive Date: 20140224
  Receipt Date: 20140224
  Transmission Date: 20141002
  Serious: Yes (Death)
  Sender: FDA-Public Use
  Company Number: NL01PV14.35166

PATIENT
  Age: 49 Year
  Sex: Female

DRUGS (7)
  1. UNKNOWN (ZOLPIDEM) TABLET [Suspect]
  2. ACETAMINOPHEN W/HYDROCODONE (HYDROCODONE, PARACETAMOL) [Suspect]
  3. FENTANYL (FENTANYL) [Suspect]
  4. CITALOPRAM (CITALOPRAM) [Suspect]
  5. MIRTAZAPINE (MIRTAZAPINE) [Suspect]
  6. PROMETHAZINE (PROMETHAZINE) [Suspect]
  7. MUSCLE RELAXANTS [Suspect]

REACTIONS (2)
  - Drug abuse [None]
  - Exposure via ingestion [None]
